FAERS Safety Report 8635312 (Version 2)
Quarter: 2012Q4

REPORT INFORMATION
  Report Type: 
  Country: US (occurrence: None)
  Receive Date: 20120613
  Receipt Date: 20120914
  Transmission Date: 20130627
  Serious: Yes (Other)
  Sender: FDA-Public Use
  Company Number: 2012AP001766

PATIENT

DRUGS (1)
  1. AMIODARONE HYDROCHLORIDE [Suspect]
     Indication: PRODUCT USED FOR UNKNOWN INDICATION

REACTIONS (8)
  - Pulmonary toxicity [None]
  - Lymphoid tissue hyperplasia [None]
  - Pleural fibrosis [None]
  - Pleural effusion [None]
  - Lymphadenopathy mediastinal [None]
  - Hilar lymphadenopathy [None]
  - Interstitial lung disease [None]
  - Interstitial lung disease [None]
